FAERS Safety Report 7544202-4 (Version None)
Quarter: 2011Q2

REPORT INFORMATION
  Report Type: 
  Country: None (occurrence: None)
  Receive Date: 20110613
  Receipt Date: 20061004
  Transmission Date: 20111010
  Serious: Yes (Other)
  Sender: FDA-Public Use
  Company Number: PHMT2006CA01930

PATIENT
  Sex: Female

DRUGS (4)
  1. SANDOSTATIN LAR [Suspect]
     Indication: HEPATIC NEOPLASM MALIGNANT
     Dosage: 20 MG, EVERY 4 WEEKS
     Dates: start: 20060905, end: 20060905
  2. MIDAZOLAM HCL [Concomitant]
     Route: 058
  3. LEVOMEPROMAZINE [Concomitant]
  4. DILAUDID [Concomitant]
     Route: 058

REACTIONS (3)
  - GENERAL PHYSICAL HEALTH DETERIORATION [None]
  - UNRESPONSIVE TO STIMULI [None]
  - BREATH SOUNDS ABNORMAL [None]
